FAERS Safety Report 5564980-3 (Version None)
Quarter: 2007Q4

REPORT INFORMATION
  Report Type: 
  Country: None (occurrence: None)
  Receive Date: 20071218
  Receipt Date: 20071210
  Transmission Date: 20080405
  Serious: Yes (Hospitalization)
  Sender: FDA-Public Use
  Company Number: B0500127A

PATIENT
  Age: 64 Year
  Sex: Female

DRUGS (7)
  1. AUGMENTIN '125' [Suspect]
     Dosage: 1G TWICE PER DAY
     Route: 048
     Dates: start: 20070621, end: 20070630
  2. DETENSIEL [Suspect]
     Dosage: 5MG PER DAY
     Route: 048
     Dates: start: 20070618, end: 20070705
  3. TAHOR [Suspect]
     Dosage: 20MG PER DAY
     Route: 048
     Dates: end: 20070705
  4. RAMIPRIL [Concomitant]
     Dosage: 1.25MG PER DAY
     Route: 048
  5. KARDEGIC [Concomitant]
     Dosage: 160MG PER DAY
     Route: 048
  6. LASIX [Concomitant]
     Dosage: 125MG TWICE PER DAY
     Route: 048
  7. AMLOR [Concomitant]
     Dosage: 10MG PER DAY
     Route: 048

REACTIONS (4)
  - GENERAL PHYSICAL HEALTH DETERIORATION [None]
  - NAUSEA [None]
  - THROMBOCYTOPENIA [None]
  - VOMITING [None]
